FAERS Safety Report 24538821 (Version 1)
Quarter: 2024Q4

REPORT INFORMATION
  Report Type: Spontaneous
  Country: IT (occurrence: IT)
  Receive Date: 20241023
  Receipt Date: 20241023
  Transmission Date: 20250114
  Serious: Yes (Life-Threatening, Other)
  Sender: SANDOZ
  Company Number: IT-NOVPHSZ-PHHY2019IT120877

PATIENT
  Age: 34 Year
  Sex: Male

DRUGS (1)
  1. QUETIAPINE FUMARATE [Suspect]
     Active Substance: QUETIAPINE FUMARATE
     Indication: Drug abuse
     Dosage: 7.8 G, (TOTAL)
     Route: 048
     Dates: start: 20190427, end: 20190427

REACTIONS (3)
  - Drug abuse [Recovering/Resolving]
  - Intentional self-injury [Recovering/Resolving]
  - Sopor [Recovering/Resolving]

NARRATIVE: CASE EVENT DATE: 20190427
